FAERS Safety Report 21091376 (Version 1)
Quarter: 2022Q3

REPORT INFORMATION
  Report Type: Spontaneous
  Country: US (occurrence: US)
  Receive Date: 20220716
  Receipt Date: 20220716
  Transmission Date: 20221026
  Serious: No
  Sender: FDA-Public Use
  Company Number: US-BRISTOL-MYERS SQUIBB COMPANY-2022-074087

PATIENT
  Age: 26 Year
  Sex: Male

DRUGS (1)
  1. ZEPOSIA [Suspect]
     Active Substance: OZANIMOD HYDROCHLORIDE
     Indication: Multiple sclerosis
     Dosage: FREQUENCY- DAILY
     Route: 048
     Dates: start: 202201

REACTIONS (2)
  - Urinary tract infection [Unknown]
  - Infection [Unknown]

NARRATIVE: CASE EVENT DATE: 20220701
